FAERS Safety Report 7522868-2 (Version None)
Quarter: 2011Q2

REPORT INFORMATION
  Report Type: 
  Country: None (occurrence: None)
  Receive Date: 20110603
  Receipt Date: 20110527
  Transmission Date: 20111010
  Serious: Yes (Other)
  Sender: FDA-Public Use
  Company Number: US-AMGEN-USASP2011021393

PATIENT
  Age: 70 Year
  Sex: Female

DRUGS (11)
  1. PROLIA [Suspect]
  2. CALCIUM CARBONATE [Concomitant]
     Route: 048
  3. COZAAR [Concomitant]
     Dosage: 50 MG, QD
     Route: 048
  4. NAPROXEN [Concomitant]
     Dosage: UNK UNK, PRN
     Route: 048
  5. VITAMIN E                          /00110501/ [Concomitant]
     Route: 048
  6. TOBRADEX [Concomitant]
     Dosage: UNK
     Route: 048
  7. PROLIA [Suspect]
     Indication: OSTEOPOROSIS POSTMENOPAUSAL
     Dosage: 60 MG, UNK
     Route: 058
     Dates: start: 20110418, end: 20110418
  8. VITAMIN D [Concomitant]
     Dosage: UNK
     Route: 048
  9. PRILOSEC [Concomitant]
     Dosage: 20 MG, QD
     Route: 048
  10. VITAMIN C                          /00008001/ [Concomitant]
     Route: 048
  11. PREMARIN [Concomitant]
     Dosage: UNK
     Route: 067

REACTIONS (5)
  - VISUAL IMPAIRMENT [None]
  - LETHARGY [None]
  - FATIGUE [None]
  - TREMOR [None]
  - VISION BLURRED [None]
